FAERS Safety Report 13933647 (Version 4)
Quarter: 2018Q3

REPORT INFORMATION
  Report Type: Spontaneous
  Country: US (occurrence: US)
  Receive Date: 20170904
  Receipt Date: 20180910
  Transmission Date: 20181010
  Serious: Yes (Hospitalization)
  Sender: FDA-Public Use
  Company Number: US-DSJP-DSU-2017-134319

PATIENT

DRUGS (2)
  1. BENICAR [Suspect]
     Active Substance: OLMESARTAN MEDOXOMIL
     Dosage: 20 MG, QD
     Route: 048
     Dates: end: 20160407
  2. BENICAR [Suspect]
     Active Substance: OLMESARTAN MEDOXOMIL
     Indication: HYPERTENSION
     Dosage: 40 MG, QD
     Route: 048
     Dates: end: 20160407

REACTIONS (5)
  - Weight decreased [Recovered/Resolved]
  - Acute kidney injury [Recovered/Resolved]
  - Gastrooesophageal reflux disease [Recovered/Resolved]
  - Constipation [Unknown]
  - Gastroenteritis [Recovering/Resolving]

NARRATIVE: CASE EVENT DATE: 20120401
